FAERS Safety Report 8957258 (Version 1)
Quarter: 2012Q4

REPORT INFORMATION
  Report Type: Spontaneous
  Country: US (occurrence: None)
  Receive Date: 20121128
  Receipt Date: 20121128
  Transmission Date: 20130627
  Serious: Yes (Hospitalization)
  Sender: FDA-Public Use
  Company Number: 54973 AE # 1111

PATIENT
  Age: 21 Month
  Sex: Male

DRUGS (2)
  1. HYLAND^S BABY TINY COLD TABLETS [Suspect]
     Dosage: 3 tabs Q 15 mins x 4
  2. TYLENOL [Suspect]

REACTIONS (4)
  - Hallucination [None]
  - Middle insomnia [None]
  - Dyspnoea [None]
  - Respiratory tract infection viral [None]
